FAERS Safety Report 5279066-5 (Version None)
Quarter: 2007Q1

REPORT INFORMATION
  Report Type: 
  Country: None (occurrence: None)
  Receive Date: 20070328
  Receipt Date: 20060811
  Transmission Date: 20070707
  Serious: Yes (Hospitalization)
  Sender: FDA-Public Use
  Company Number: US-AMGEN-US166066

PATIENT
  Sex: Male

DRUGS (4)
  1. NEULASTA [Suspect]
     Indication: CHEMOTHERAPY
     Route: 058
     Dates: start: 20060111, end: 20060111
  2. ALIMTA [Concomitant]
     Dates: start: 20060110
  3. CARBOPLATIN [Concomitant]
     Dates: start: 20060110
  4. DILAUDID [Concomitant]

REACTIONS (1)
  - FEBRILE NEUTROPENIA [None]
